FAERS Safety Report 18289190 (Version 2)
Quarter: 2021Q1

REPORT INFORMATION
  Report Type: Spontaneous
  Country: US (occurrence: US)
  Receive Date: 20200921
  Receipt Date: 20210331
  Transmission Date: 20210419
  Serious: No
  Sender: FDA-Public Use
  Company Number: US-PFIZER INC-2020361860

PATIENT
  Age: 63 Year
  Sex: Male

DRUGS (1)
  1. XELJANZ XR [Suspect]
     Active Substance: TOFACITINIB CITRATE
     Indication: RHEUMATOID ARTHRITIS
     Dosage: 11 MG, DAILY
     Route: 048
     Dates: start: 202003

REACTIONS (7)
  - Yawning [Unknown]
  - Sleep disorder due to general medical condition, insomnia type [Recovered/Resolved]
  - Loss of personal independence in daily activities [Unknown]
  - Depression [Unknown]
  - Pollakiuria [Unknown]
  - Fatigue [Unknown]
  - Sensitivity to weather change [Unknown]
